FAERS Safety Report 18702721 (Version 2)
Quarter: 2022Q1

REPORT INFORMATION
  Report Type: Spontaneous
  Country: US (occurrence: US)
  Receive Date: 20210105
  Receipt Date: 20220105
  Transmission Date: 20220423
  Serious: No
  Sender: FDA-Public Use
  Company Number: US-VERTEX PHARMACEUTICALS-2020-025606

PATIENT
  Age: 37 Year
  Sex: Female
  Weight: 81.678 kg

DRUGS (1)
  1. SYMDEKO [Suspect]
     Active Substance: IVACAFTOR\TEZACAFTOR
     Indication: Cystic fibrosis
     Dosage: 1 DOSAGE FORM, BID (1 YELLOW TABLET IN THE MORNING AND 1 BLUE TABLET IN THE EVENING)
     Route: 048
     Dates: start: 202009

REACTIONS (1)
  - Weight increased [Unknown]

NARRATIVE: CASE EVENT DATE: 20200901
